FAERS Safety Report 17053056 (Version 1)
Quarter: 2019Q4

REPORT INFORMATION
  Report Type: Spontaneous
  Country: US (occurrence: US)
  Receive Date: 20191021
  Receipt Date: 20191021
  Transmission Date: 20200122
  Serious: Yes (Disabling, Other)
  Sender: FDA-Public Use
  Company Number: None

PATIENT
  Age: 43 Year
  Sex: Female
  Weight: 73.03 kg

DRUGS (5)
  1. MULTIVITAMIN [Concomitant]
     Active Substance: VITAMINS
  2. BIOTIN [Concomitant]
     Active Substance: BIOTIN
  3. ABILIFY MAINTENA [Suspect]
     Active Substance: ARIPIPRAZOLE
     Indication: MENTAL DISORDER
     Dosage: ?          OTHER ROUTE:INJECTION ONCE?
     Dates: start: 20190101
  4. PERSERIS [Concomitant]
     Active Substance: RISPERIDONE
  5. KLONOPIN [Concomitant]
     Active Substance: CLONAZEPAM

REACTIONS (8)
  - Fatigue [None]
  - Tremor [None]
  - Chronic gastritis [None]
  - Abdominal pain upper [None]
  - Weight decreased [None]
  - Nausea [None]
  - Asthenia [None]
  - Precancerous cells present [None]

NARRATIVE: CASE EVENT DATE: 20190101
